FAERS Safety Report 10808723 (Version 1)
Quarter: 2015Q1

REPORT INFORMATION
  Report Type: Report from Study
  Country: US (occurrence: US)
  Receive Date: 20150217
  Receipt Date: 20150217
  Transmission Date: 20150721
  Serious: No
  Sender: FDA-Public Use
  Company Number: US-ABBVIE-14K-163-1231510-00

PATIENT
  Age: 25 Year
  Sex: Female

DRUGS (3)
  1. HUMIRA [Suspect]
     Active Substance: ADALIMUMAB
     Indication: CROHN^S DISEASE
     Dates: start: 2013, end: 2014
  2. HUMIRA [Suspect]
     Active Substance: ADALIMUMAB
     Dates: start: 2014
  3. TRAMADOL [Suspect]
     Active Substance: TRAMADOL
     Indication: PAIN

REACTIONS (6)
  - Haematochezia [Recovered/Resolved]
  - Nausea [Unknown]
  - Mastication disorder [Unknown]
  - Pain in jaw [Unknown]
  - Headache [Unknown]
  - Mastoiditis [Unknown]

NARRATIVE: CASE EVENT DATE: 2014
